FAERS Safety Report 24239830 (Version 1)
Quarter: 2024Q3

REPORT INFORMATION
  Report Type: Spontaneous
  Country: US (occurrence: US)
  Receive Date: 20240822
  Receipt Date: 20240822
  Transmission Date: 20241016
  Serious: No
  Sender: JOHNSON AND JOHNSON
  Company Number: US-JNJFOC-20240851697

PATIENT
  Age: 31 Year
  Sex: Male
  Weight: 99.88 kg

DRUGS (1)
  1. TREMFYA [Suspect]
     Active Substance: GUSELKUMAB
     Indication: Psoriasis
     Route: 058
     Dates: start: 20240814

REACTIONS (3)
  - Joint stiffness [Not Recovered/Not Resolved]
  - Musculoskeletal stiffness [Unknown]
  - Headache [Unknown]

NARRATIVE: CASE EVENT DATE: 20240817
